FAERS Safety Report 5886520-1 (Version None)
Quarter: 2008Q3

REPORT INFORMATION
  Report Type: 
  Country: None (occurrence: None)
  Receive Date: 20080917
  Receipt Date: 20080908
  Transmission Date: 20090109
  Serious: Yes (Disabling)
  Sender: FDA-Public Use
  Company Number: US-MERCK-0805USA00458

PATIENT
  Age: 62 Year
  Sex: Female
  Weight: 75 kg

DRUGS (2)
  1. ZETIA [Suspect]
     Indication: BLOOD CHOLESTEROL INCREASED
     Route: 048
     Dates: start: 20060101, end: 20060101
  2. SYNTHROID [Concomitant]
     Indication: HYPOTHYROIDISM
     Route: 048
     Dates: end: 20080101

REACTIONS (3)
  - GAIT DISTURBANCE [None]
  - MUSCULAR WEAKNESS [None]
  - MYALGIA [None]
